FAERS Safety Report 4596410-2 (Version None)
Quarter: 2005Q1

REPORT INFORMATION
  Report Type: 
  Country: None (occurrence: None)
  Receive Date: 20050228
  Receipt Date: 20050214
  Transmission Date: 20050727
  Serious: Yes (Life-Threatening, Disabling)
  Sender: FDA-Public Use
  Company Number: 2005028736

PATIENT
  Age: 58 Year
  Sex: Female
  Weight: 58 kg

DRUGS (1)
  1. SULFASALAZINE [Suspect]
     Indication: ARTHRITIS
     Dosage: ORAL
     Route: 048
     Dates: start: 20000308, end: 20000317

REACTIONS (5)
  - BURNING SENSATION [None]
  - FOOD INTOLERANCE [None]
  - LUNG DISORDER [None]
  - PNEUMONIA [None]
  - RASH [None]
